FAERS Safety Report 13862631 (Version 1)
Quarter: 2017Q3

REPORT INFORMATION
  Report Type: Spontaneous
  Country: US (occurrence: US)
  Receive Date: 20170814
  Receipt Date: 20170814
  Transmission Date: 20171127
  Serious: Yes (Hospitalization)
  Sender: FDA-Public Use
  Company Number: US-ABBVIE-17K-163-2068622-00

PATIENT
  Age: 40 Year
  Sex: Female

DRUGS (1)
  1. HUMIRA [Suspect]
     Active Substance: ADALIMUMAB
     Indication: HIDRADENITIS
     Route: 058

REACTIONS (4)
  - Gastrointestinal infection [Recovered/Resolved]
  - Alopecia [Not Recovered/Not Resolved]
  - Hidradenitis [Not Recovered/Not Resolved]
  - Gastrointestinal oedema [Recovered/Resolved]
